FAERS Safety Report 9900152 (Version 1)
Quarter: 2014Q1

REPORT INFORMATION
  Report Type: Other
  Country: GB (occurrence: GB)
  Receive Date: 20140214
  Receipt Date: 20140214
  Transmission Date: 20141002
  Serious: Yes (Other)
  Sender: FDA-Public Use
  Company Number: GB-TAKEDA-2014TJP001342

PATIENT
  Sex: 0

DRUGS (3)
  1. LANSOPRAZOLE [Suspect]
     Indication: PRODUCT USED FOR UNKNOWN INDICATION
     Route: 065
  2. AMLODIPINE [Suspect]
     Indication: HYPERTENSION
     Dosage: 5 MG, UNK
     Route: 048
     Dates: start: 201311, end: 201312
  3. IRON [Concomitant]

REACTIONS (7)
  - Inhibitory drug interaction [Recovered/Resolved]
  - Pain [Unknown]
  - Back pain [Unknown]
  - Palpitations [Unknown]
  - Condition aggravated [Unknown]
  - Hiatus hernia [Unknown]
  - Drug ineffective [Unknown]
